FAERS Safety Report 6357887-5 (Version None)
Quarter: 2009Q3

REPORT INFORMATION
  Report Type: 
  Country: None (occurrence: None)
  Receive Date: 20090916
  Receipt Date: 20090810
  Transmission Date: 20100115
  Serious: No
  Sender: FDA-Public Use
  Company Number: US-BAYER-200928714NA

PATIENT
  Age: 35 Year
  Sex: Female

DRUGS (2)
  1. MIRENA [Suspect]
     Indication: CONTRACEPTION
     Dosage: CONTINUOUS
     Route: 015
     Dates: start: 20090324, end: 20090629
  2. MIRENA [Suspect]

REACTIONS (2)
  - INTRA-UTERINE CONTRACEPTIVE DEVICE EXPELLED [None]
  - VAGINAL HAEMORRHAGE [None]
